FAERS Safety Report 9076739 (Version 1)
Quarter: 2013Q1

REPORT INFORMATION
  Report Type: Spontaneous
  Country: US (occurrence: US)
  Receive Date: 20130129
  Receipt Date: 20130129
  Transmission Date: 20140127
  Serious: No
  Sender: FDA-Public Use
  Company Number: US-ABBOTT-12P-163-0933915-00

PATIENT
  Age: 51 None
  Sex: Female
  Weight: 67.65 kg

DRUGS (9)
  1. HUMIRA 40 MG/0.8 ML PEN [Suspect]
     Indication: COLITIS ULCERATIVE
     Dates: start: 201111, end: 201203
  2. HUMIRA 40 MG/0.8 ML PEN [Suspect]
     Dates: start: 20120320
  3. HUMIRA 40 MG/0.8 ML PEN [Suspect]
  4. CELEXA [Concomitant]
     Indication: DEPRESSION
  5. CELEXA [Concomitant]
     Indication: COLITIS ULCERATIVE
  6. ASPIRIN [Concomitant]
     Indication: PROPHYLAXIS
  7. ASPIRIN [Concomitant]
     Indication: CARDIAC DISORDER
  8. PREDNISONE [Concomitant]
     Indication: COLITIS ULCERATIVE
  9. PROBIOTIC [Concomitant]
     Indication: PRODUCT USED FOR UNKNOWN INDICATION

REACTIONS (10)
  - Off label use [Not Recovered/Not Resolved]
  - Device malfunction [Unknown]
  - Incorrect dose administered [Unknown]
  - Unevaluable event [Recovered/Resolved]
  - Pain in extremity [Not Recovered/Not Resolved]
  - Pain in extremity [Not Recovered/Not Resolved]
  - Pain in jaw [Not Recovered/Not Resolved]
  - Gingival pain [Not Recovered/Not Resolved]
  - Diarrhoea [Not Recovered/Not Resolved]
  - Drug ineffective [Not Recovered/Not Resolved]
